FAERS Safety Report 5094952-7 (Version None)
Quarter: 2006Q3

REPORT INFORMATION
  Report Type: 
  Country: None (occurrence: None)
  Receive Date: 20060901
  Receipt Date: 20060824
  Transmission Date: 20061208
  Serious: Yes (Death)
  Sender: FDA-Public Use
  Company Number: US-JNJFOC-20060805860

PATIENT
  Sex: Female
  Weight: 95.26 kg

DRUGS (3)
  1. ORTHO EVRA [Suspect]
     Indication: DRUG USE FOR UNKNOWN INDICATION
     Route: 062
  2. ZITHROMAX [Concomitant]
  3. LEVAQUIN [Concomitant]

REACTIONS (9)
  - BACK PAIN [None]
  - CARDIAC ARREST [None]
  - CHOLELITHIASIS [None]
  - CONVULSION [None]
  - DIZZINESS [None]
  - FALL [None]
  - PULMONARY EMBOLISM [None]
  - RESPIRATORY DISTRESS [None]
  - VENOUS THROMBOSIS [None]
